FAERS Safety Report 12247367 (Version 4)
Quarter: 2016Q3

REPORT INFORMATION
  Report Type: Report from Study
  Country: BR (occurrence: BR)
  Receive Date: 20160407
  Receipt Date: 20160712
  Transmission Date: 20161109
  Serious: Yes (Hospitalization, Other)
  Sender: FDA-Public Use
  Company Number: BR-ABBVIE-16K-020-1597810-00

PATIENT
  Age: 55 Year
  Sex: Female
  Weight: 67 kg

DRUGS (14)
  1. HUMIRA [Suspect]
     Active Substance: ADALIMUMAB
     Indication: CROHN^S DISEASE
     Dosage: INDUCTION DOSE, WEEK 0
     Route: 058
     Dates: start: 20150402, end: 20150402
  2. FLEBOCORTID [Concomitant]
     Active Substance: HYDROCORTISONE SODIUM SUCCINATE
     Indication: PRODUCT USED FOR UNKNOWN INDICATION
     Dosage: DURING CURRENT HOSPITALIZATION
  3. MESALAZINE [Suspect]
     Active Substance: MESALAMINE
     Indication: PRODUCT USED FOR UNKNOWN INDICATION
     Route: 065
  4. OMEPRAZOLE. [Concomitant]
     Active Substance: OMEPRAZOLE
     Indication: PRODUCT USED FOR UNKNOWN INDICATION
     Dosage: DURING CURRENT HOSPITALIZATION
  5. BROMOPRIDE [Concomitant]
     Active Substance: BROMOPRIDE
     Indication: PRODUCT USED FOR UNKNOWN INDICATION
     Dosage: DURING CURRENT HOSPITALIZATION
  6. DRAMAMINE [Concomitant]
     Active Substance: DIMENHYDRINATE
     Indication: PRODUCT USED FOR UNKNOWN INDICATION
     Dosage: DURING CURRENT HOSPITALIZATION
  7. FUROSEMIDE. [Concomitant]
     Active Substance: FUROSEMIDE
     Indication: FLUID RETENTION
     Route: 048
  8. HUMIRA [Suspect]
     Active Substance: ADALIMUMAB
     Route: 058
     Dates: start: 2015, end: 20160317
  9. RIVOTRIL [Concomitant]
     Active Substance: CLONAZEPAM
     Indication: SLEEP DISORDER THERAPY
     Route: 048
     Dates: start: 1996
  10. CIPROFLOXACIN. [Concomitant]
     Active Substance: CIPROFLOXACIN
     Indication: PRODUCT USED FOR UNKNOWN INDICATION
     Dosage: DURING CURRENT HOSPITALIZATION
  11. HUMIRA [Suspect]
     Active Substance: ADALIMUMAB
     Dosage: LOADING DOSE, WEEK 2
     Route: 058
     Dates: start: 201504, end: 201504
  12. HUMIRA [Suspect]
     Active Substance: ADALIMUMAB
     Route: 058
     Dates: start: 2016, end: 20160612
  13. ALDACTONE [Concomitant]
     Active Substance: SPIRONOLACTONE
     Indication: FLUID RETENTION
     Route: 048
  14. INSULINE [Concomitant]
     Active Substance: INSULIN NOS
     Indication: PRODUCT USED FOR UNKNOWN INDICATION
     Dosage: DURING CURRENT HOSPITALIZATION

REACTIONS (16)
  - Chills [Recovered/Resolved]
  - Pancreatitis [Recovered/Resolved]
  - Mucous stools [Recovering/Resolving]
  - Haematochezia [Recovered/Resolved]
  - Pancreatitis [Recovered/Resolved]
  - Pyrexia [Recovered/Resolved]
  - Pancreatitis [Recovered/Resolved]
  - Pyrexia [Recovered/Resolved]
  - Gastrointestinal infection [Unknown]
  - Osteoarthritis [Not Recovered/Not Resolved]
  - Pyrexia [Not Recovered/Not Resolved]
  - Pancreatitis relapsing [Recovered/Resolved]
  - Medical device implantation [Unknown]
  - Pancreatitis [Recovered/Resolved]
  - Pain [Recovered/Resolved]
  - Crohn^s disease [Not Recovered/Not Resolved]

NARRATIVE: CASE EVENT DATE: 2015
